FAERS Safety Report 4454752-5 (Version None)
Quarter: 2004Q3

REPORT INFORMATION
  Report Type: 
  Country: None (occurrence: None)
  Receive Date: 20040920
  Receipt Date: 20040920
  Transmission Date: 20050211
  Serious: Yes (Hospitalization)
  Sender: FDA-Public Use
  Company Number: None

PATIENT
  Age: 58 Year
  Sex: Male
  Weight: 80.7403 kg

DRUGS (8)
  1. LITHIUM CARBONATE [Suspect]
     Indication: BIPOLAR DISORDER
     Dosage: SEE IMAGE
     Route: 048
     Dates: start: 19970101, end: 20040603
  2. IBUPROFEN [Suspect]
     Indication: MUSCLE STRAIN
     Dosage: 800MG PO TID
     Route: 048
     Dates: start: 20040521, end: 20040603
  3. FERROUS SULFATE TAB [Concomitant]
  4. GEMFIBROZIL [Concomitant]
  5. PROPRANOLOL [Concomitant]
  6. BENZTROPINE MESYLATE [Concomitant]
  7. OLANZAPINE [Concomitant]
  8. DIPHENHYDRAMINE HCL [Concomitant]

REACTIONS (6)
  - CHEST WALL PAIN [None]
  - DRUG LEVEL ABOVE THERAPEUTIC [None]
  - GAIT DISTURBANCE [None]
  - MUSCLE STRAIN [None]
  - SLEEP DISORDER [None]
  - THERAPEUTIC AGENT TOXICITY [None]
